FAERS Safety Report 4930232-5 (Version None)
Quarter: 2006Q1

REPORT INFORMATION
  Report Type: 
  Country: None (occurrence: None)
  Receive Date: 20060302
  Receipt Date: 20060210
  Transmission Date: 20060701
  Serious: Yes (Hospitalization)
  Sender: FDA-Public Use
  Company Number: FR-RB-2767-2006

PATIENT
  Age: 32 Year
  Sex: Female

DRUGS (1)
  1. BUPRENORPHINE HCL [Suspect]
     Indication: DRUG USE FOR UNKNOWN INDICATION
     Route: 042

REACTIONS (9)
  - ANOREXIA [None]
  - AORTIC ANEURYSM [None]
  - ASTHENIA [None]
  - GENERAL PHYSICAL HEALTH DETERIORATION [None]
  - INTENTIONAL DRUG MISUSE [None]
  - LYMPHADENITIS [None]
  - PLATELET COUNT INCREASED [None]
  - STAPHYLOCOCCAL SEPSIS [None]
  - WEIGHT DECREASED [None]
